FAERS Safety Report 7056419-6 (Version None)
Quarter: 2010Q4

REPORT INFORMATION
  Report Type: 
  Country: None (occurrence: None)
  Receive Date: 20101021
  Receipt Date: 20101015
  Transmission Date: 20110411
  Serious: Yes (Death, Hospitalization, Other)
  Sender: FDA-Public Use
  Company Number: CO-WYE-H18230610

PATIENT
  Sex: Female

DRUGS (1)
  1. RAPAMUNE [Suspect]
     Indication: PROPHYLAXIS AGAINST TRANSPLANT REJECTION
     Route: 048
     Dates: start: 20070101

REACTIONS (5)
  - HODGKIN'S DISEASE [None]
  - METASTASIS [None]
  - PNEUMONIA [None]
  - SINUSITIS [None]
  - THROMBOCYTOPENIA [None]
